FAERS Safety Report 19813858 (Version 2)
Quarter: 2021Q3

REPORT INFORMATION
  Report Type: Report from Study
  Country: CH (occurrence: CH)
  Receive Date: 20210909
  Receipt Date: 20210914
  Transmission Date: 20211014
  Serious: Yes (Hospitalization)
  Sender: FDA-Public Use
  Company Number: CH-ROCHE-2905741

PATIENT
  Age: 61 Year
  Sex: Male

DRUGS (4)
  1. ATEZOLIZUMAB. [Suspect]
     Active Substance: ATEZOLIZUMAB
     Indication: MESOTHELIOMA
  2. GEMCITABINE. [Suspect]
     Active Substance: GEMCITABINE
     Indication: MESOTHELIOMA
  3. ATEZOLIZUMAB. [Suspect]
     Active Substance: ATEZOLIZUMAB
     Indication: NON-SMALL CELL LUNG CANCER
     Dosage: DATE OF LAST ADMINISTRATION BEFORE SAE ONSET 10/AUG/2021
     Route: 042
     Dates: start: 20210810
  4. GEMCITABINE. [Suspect]
     Active Substance: GEMCITABINE
     Indication: NON-SMALL CELL LUNG CANCER
     Dosage: DATE OF LAST ADMINISTRATION BEFORE SAE ONSET 17/AUG/2021
     Route: 042
     Dates: start: 20210810

REACTIONS (1)
  - Delirium [Recovered/Resolved with Sequelae]

NARRATIVE: CASE EVENT DATE: 20210901
